FAERS Safety Report 16450260 (Version 1)
Quarter: 2019Q3

REPORT INFORMATION
  Report Type: Spontaneous
  Country: US (occurrence: US)
  Receive Date: 20190618
  Receipt Date: 20190618
  Transmission Date: 20191004
  Serious: Yes (Other)
  Sender: FDA-Public Use
  Company Number: None

PATIENT
  Age: 44 Year
  Sex: Male
  Weight: 67.5 kg

DRUGS (1)
  1. BUPRENORPHINE. [Suspect]
     Active Substance: BUPRENORPHINE
     Indication: PAIN
     Dosage: ?          OTHER STRENGTH:MCG;QUANTITY:1 PATCH(ES);OTHER FREQUENCY:WEEKLY;?
     Route: 062

REACTIONS (3)
  - Device adhesion issue [None]
  - Incorrect dose administered by device [None]
  - Product substitution issue [None]

NARRATIVE: CASE EVENT DATE: 20190603
